FAERS Safety Report 10700719 (Version 1)
Quarter: 2014Q4

REPORT INFORMATION
  Report Type: Spontaneous
  Country: US (occurrence: None)
  Receive Date: 20141224
  Receipt Date: 20141224
  Transmission Date: 20150529
  Serious: Yes (Other)
  Sender: FDA-Public Use
  Company Number: PHEH2014US013511

PATIENT
  Age: 15 Year
  Sex: Male
  Weight: 79.4 kg

DRUGS (5)
  1. CONCERTA [Suspect]
     Active Substance: METHYLPHENIDATE HYDROCHLORIDE
     Dosage: 18 MG, EACH MORNING
  2. GUANFACINE HYDROCHLORIDE. [Suspect]
     Active Substance: GUANFACINE HYDROCHLORIDE
     Dates: start: 20130711
  3. STRATTERA [Suspect]
     Active Substance: ATOMOXETINE HYDROCHLORIDE
     Indication: ATTENTION DEFICIT/HYPERACTIVITY DISORDER
     Dosage: 100 MG (75 MG IN MORNING AND 25 AT 16:00 HOURS), EACH MORNING
     Dates: start: 20090715
  4. VYVANSE [Suspect]
     Active Substance: LISDEXAMFETAMINE DIMESYLATE
     Dosage: 20 MG (EACH MORNING)
     Dates: start: 201105, end: 20110818
  5. FOCALIN [Suspect]
     Active Substance: DEXMETHYLPHENIDATE HYDROCHLORIDE
     Dates: start: 20110505, end: 20110516

REACTIONS (2)
  - Hypertension [None]
  - Mood swings [None]

NARRATIVE: CASE EVENT DATE: 20110516
